FAERS Safety Report 16537921 (Version 1)
Quarter: 2019Q3

REPORT INFORMATION
  Report Type: Spontaneous
  Country: DE (occurrence: DE)
  Receive Date: 20190708
  Receipt Date: 20190708
  Transmission Date: 20191004
  Serious: Yes (Life-Threatening, Hospitalization)
  Sender: FDA-Public Use
  Company Number: DE-SA-2019SA179344

PATIENT
  Age: 66 Year
  Sex: Female

DRUGS (10)
  1. ENALAPRIL [Concomitant]
     Active Substance: ENALAPRIL
     Dosage: TABLETTEN
     Route: 048
  2. LANTUS [Suspect]
     Active Substance: INSULIN GLARGINE
     Dosage: 40 IE, 0-0-0-1
     Route: 058
  3. HUMALOG [Concomitant]
     Active Substance: INSULIN LISPRO
     Route: 058
  4. AMOXICLAV [Concomitant]
     Active Substance: AMOXICILLIN\CLAVULANATE POTASSIUM
     Route: 048
  5. AMLODIPINE [Concomitant]
     Active Substance: AMLODIPINE BESYLATE
     Dosage: TABLETTEN
     Route: 048
  6. BISOPROLOL [Concomitant]
     Active Substance: BISOPROLOL
     Dosage: UNK
     Route: 048
  7. ASPIRIN. [Concomitant]
     Active Substance: ASPIRIN
     Dosage: 100 MG, QD
     Route: 048
  8. HCT [Concomitant]
     Active Substance: HYDROCHLOROTHIAZIDE
     Dosage: TABLETTEN
     Route: 048
  9. SIMVASTATIN. [Concomitant]
     Active Substance: SIMVASTATIN
     Dosage: TABLETTEN
     Route: 048
  10. METFORMIN [Concomitant]
     Active Substance: METFORMIN HYDROCHLORIDE
     Dosage: 850 MG, BID
     Route: 048

REACTIONS (5)
  - Amnesia [Recovered/Resolved]
  - Fall [Recovered/Resolved]
  - Accidental overdose [Recovered/Resolved]
  - Hypoglycaemia [Recovered/Resolved]
  - Product administration error [Recovered/Resolved]

NARRATIVE: CASE EVENT DATE: 20160205
